FAERS Safety Report 5897887-2 (Version None)
Quarter: 2008Q3

REPORT INFORMATION
  Report Type: 
  Country: None (occurrence: None)
  Receive Date: 20080925
  Receipt Date: 20080912
  Transmission Date: 20090109
  Serious: Yes (Other)
  Sender: FDA-Public Use
  Company Number: NL-BAYER-200820970GPV

PATIENT
  Age: 44 Year
  Sex: Female

DRUGS (2)
  1. MIRENA [Suspect]
     Indication: DRUG USE FOR UNKNOWN INDICATION
     Route: 015
     Dates: start: 19980101, end: 20040101
  2. MIRENA [Suspect]
     Route: 015
     Dates: start: 20040101, end: 20080601

REACTIONS (2)
  - ADENOCARCINOMA [None]
  - METASTASES TO LIVER [None]
